FAERS Safety Report 24253865 (Version 1)
Quarter: 2024Q3

REPORT INFORMATION
  Report Type: Spontaneous
  Country: US (occurrence: US)
  Receive Date: 20240827
  Receipt Date: 20240827
  Transmission Date: 20241017
  Serious: No
  Sender: ROCHE
  Company Number: US-ROCHE-10000066620

PATIENT
  Sex: Male

DRUGS (14)
  1. RITUXAN [Suspect]
     Active Substance: RITUXIMAB
     Indication: Diffuse large B-cell lymphoma
     Route: 065
  2. METHOTREXATE [Concomitant]
     Active Substance: METHOTREXATE
     Dosage: 50MG/2ML
  3. COLCHICINE [Concomitant]
     Active Substance: COLCHICINE
  4. ELIQUIS [Concomitant]
     Active Substance: APIXABAN
  5. ESZOPICLONE [Concomitant]
     Active Substance: ESZOPICLONE
  6. FLOMAX [Concomitant]
     Active Substance: TAMSULOSIN HYDROCHLORIDE
  7. FLUOCINONIDE [Concomitant]
     Active Substance: FLUOCINONIDE
  8. METFORMIN [Concomitant]
     Active Substance: METFORMIN HYDROCHLORIDE
  9. NEOMYCIN-PO [Concomitant]
     Dosage: OIN 3.5- 1000
  10. OLMESARTAN [Concomitant]
     Active Substance: OLMESARTAN
  11. ONDANSETRON [Concomitant]
     Active Substance: ONDANSETRON
  12. SILDENAFIL [Concomitant]
     Active Substance: SILDENAFIL
  13. TRAMADOL [Concomitant]
     Active Substance: TRAMADOL\TRAMADOL HYDROCHLORIDE
  14. TRAZODONE [Concomitant]
     Active Substance: TRAZODONE HYDROCHLORIDE

REACTIONS (4)
  - Constipation [Recovered/Resolved]
  - Headache [Unknown]
  - Cold sweat [Unknown]
  - Insomnia [Unknown]
